FAERS Safety Report 8053481-9 (Version None)
Quarter: 2012Q1

REPORT INFORMATION
  Report Type: 
  Country: None (occurrence: None)
  Receive Date: 20120118
  Receipt Date: 20120112
  Transmission Date: 20120608
  Serious: Yes (Other)
  Sender: FDA-Public Use
  Company Number: US-PFIZER INC-2012010010

PATIENT
  Sex: Male
  Weight: 65.306 kg

DRUGS (7)
  1. ALPRAZOLAM [Suspect]
     Indication: ANXIETY
  2. ACETYLSALICYLIC ACID [Concomitant]
     Dosage: UNK
  3. ALPRAZOLAM [Suspect]
     Indication: INSOMNIA
     Dosage: 2 MG, 3X/DAY
     Route: 048
     Dates: start: 20111217
  4. XANAX [Suspect]
     Indication: INSOMNIA
     Dosage: 2 MG, 3X/DAY
     Route: 048
     Dates: end: 20111217
  5. XANAX [Suspect]
     Indication: ANXIETY
  6. SYNTHROID [Concomitant]
     Indication: HYPOTHYROIDISM
     Dosage: UNK
  7. IRON [Concomitant]
     Dosage: UNK

REACTIONS (6)
  - DIZZINESS [None]
  - MUSCLE SPASMS [None]
  - HEADACHE [None]
  - MUSCULAR WEAKNESS [None]
  - THROAT TIGHTNESS [None]
  - DYSSTASIA [None]
